FAERS Safety Report 9216422 (Version 1)
Quarter: 2013Q2

REPORT INFORMATION
  Report Type: Spontaneous
  Country: US (occurrence: None)
  Receive Date: 20130402
  Receipt Date: 20130402
  Transmission Date: 20140414
  Serious: Yes (Other)
  Sender: FDA-Public Use
  Company Number: IPC201303-000099

PATIENT
  Sex: Female

DRUGS (3)
  1. HYDROXYCHLOROQUINE SULFATE [Suspect]
     Route: 048
     Dates: start: 20130206, end: 20130315
  2. HYDROCORTISONE [Suspect]
     Indication: ADDISON^S DISEASE
  3. MESTINON [Concomitant]

REACTIONS (3)
  - Weight increased [None]
  - Hunger [None]
  - Blood glucose fluctuation [None]
